FAERS Safety Report 8916055 (Version 3)
Quarter: 2014Q2

REPORT INFORMATION
  Report Type: Spontaneous
  Country: US (occurrence: US)
  Receive Date: 20121119
  Receipt Date: 20140417
  Transmission Date: 20141212
  Serious: Yes (Death, Hospitalization)
  Sender: FDA-Public Use
  Company Number: US-US-EMD SERONO, INC.-7174933

PATIENT
  Age: 66 Year
  Sex: Male
  Weight: 59 kg

DRUGS (5)
  1. REBIF [Suspect]
     Indication: SECONDARY PROGRESSIVE MULTIPLE SCLEROSIS
     Route: 058
     Dates: start: 20061201
  2. BACLOFEN [Concomitant]
     Indication: PRODUCT USED FOR UNKNOWN INDICATION
  3. DOCUSATE SODIUM [Concomitant]
     Indication: PRODUCT USED FOR UNKNOWN INDICATION
  4. GALANTMINE ER [Concomitant]
     Indication: PRODUCT USED FOR UNKNOWN INDICATION
  5. TYLENOL PM [Concomitant]
     Indication: PRODUCT USED FOR UNKNOWN INDICATION
     Dosage: 25-500 MG

REACTIONS (5)
  - Respiratory arrest [Fatal]
  - Cardiac arrest [Fatal]
  - Multiple sclerosis [Fatal]
  - Fall [Unknown]
  - Dehydration [Unknown]
